FAERS Safety Report 14454792 (Version 5)
Quarter: 2018Q4

REPORT INFORMATION
  Report Type: Spontaneous
  Country: US (occurrence: US)
  Receive Date: 20180129
  Receipt Date: 20181227
  Transmission Date: 20190204
  Serious: Yes (Hospitalization, Other)
  Sender: FDA-Public Use
  Company Number: US-DSJP-DSU-2017-133723

PATIENT

DRUGS (4)
  1. BENICAR HCT [Suspect]
     Active Substance: HYDROCHLOROTHIAZIDE\OLMESARTAN MEDOXOMIL
     Indication: HYPERTENSION
     Dosage: 40/25MG, QD
     Route: 048
     Dates: start: 20051212, end: 201203
  2. BENICAR [Suspect]
     Active Substance: OLMESARTAN MEDOXOMIL
     Dosage: 20MG, QD
     Route: 048
     Dates: start: 20120426
  3. BENICAR HCT [Suspect]
     Active Substance: HYDROCHLOROTHIAZIDE\OLMESARTAN MEDOXOMIL
     Dosage: 40/25 MG, QD
     Route: 048
     Dates: end: 20130807
  4. BENICAR [Suspect]
     Active Substance: OLMESARTAN MEDOXOMIL
     Indication: PRODUCT USED FOR UNKNOWN INDICATION
     Dosage: 40MG, QD
     Route: 048
     Dates: start: 20120407, end: 20130716

REACTIONS (9)
  - Coeliac disease [Recovering/Resolving]
  - Sprue-like enteropathy [Recovering/Resolving]
  - Acute kidney injury [Not Recovered/Not Resolved]
  - Diverticulum intestinal [Recovered/Resolved]
  - Adverse drug reaction [Unknown]
  - Constipation [Unknown]
  - Atrial fibrillation [Not Recovered/Not Resolved]
  - Diarrhoea haemorrhagic [Unknown]
  - Syncope [Not Recovered/Not Resolved]

NARRATIVE: CASE EVENT DATE: 20070601
